FAERS Safety Report 24593319 (Version 2)
Quarter: 2024Q4

REPORT INFORMATION
  Report Type: Spontaneous
  Country: ES (occurrence: ES)
  Receive Date: 20241108
  Receipt Date: 20241125
  Transmission Date: 20250115
  Serious: Yes (Hospitalization)
  Sender: CSL BEHRING
  Company Number: None

PATIENT

DRUGS (2)
  1. RHOPHYLAC [Suspect]
     Active Substance: HUMAN RHO(D) IMMUNE GLOBULIN
     Indication: Prophylaxis against Rh isoimmunisation
     Dosage: 300 ?G
     Route: 064
     Dates: start: 20240403, end: 20240403
  2. RHOPHYLAC [Suspect]
     Active Substance: HUMAN RHO(D) IMMUNE GLOBULIN
     Indication: Prophylaxis against Rh isoimmunisation
     Dosage: 300 ?G
     Route: 064
     Dates: start: 20240403, end: 20240403

REACTIONS (2)
  - Blood incompatibility haemolytic anaemia of newborn [Recovered/Resolved]
  - Foetal exposure during pregnancy [Unknown]

NARRATIVE: CASE EVENT DATE: 20240917
